FAERS Safety Report 4567502-9 (Version None)
Quarter: 2005Q1

REPORT INFORMATION
  Report Type: 
  Country: None (occurrence: None)
  Receive Date: 20050127
  Receipt Date: 20050113
  Transmission Date: 20050727
  Serious: Yes (Hospitalization)
  Sender: FDA-Public Use
  Company Number: DSA_25664_2005

PATIENT
  Age: 55 Year
  Sex: Male

DRUGS (5)
  1. ENALAPRIL MALEATE [Suspect]
     Dosage: 20 MG QD PO
     Route: 048
     Dates: start: 20050103, end: 20050113
  2. AMIODARONE HYDROCHLORIDE [Concomitant]
  3. ATENOLOL [Concomitant]
  4. INSULIN LISPRO [Concomitant]
  5. PRISTINAMYCIN [Concomitant]

REACTIONS (5)
  - DRUG ERUPTION [None]
  - EOSINOPHIL COUNT INCREASED [None]
  - PURPURA [None]
  - RASH [None]
  - WHITE BLOOD CELL COUNT DECREASED [None]
